FAERS Safety Report 16114696 (Version 3)
Quarter: 2022Q1

REPORT INFORMATION
  Report Type: Spontaneous
  Country: CA (occurrence: CA)
  Receive Date: 20190325
  Receipt Date: 20220318
  Transmission Date: 20220424
  Serious: Yes (Disabling, Other)
  Sender: FDA-Public Use
  Company Number: CA-PURDUE PHARMA-CAN-2019-0009799

PATIENT
  Age: 40 Year
  Sex: Female

DRUGS (114)
  1. HYDROMORPHONE [Suspect]
     Active Substance: HYDROMORPHONE
     Indication: Product used for unknown indication
     Dosage: 4.5 MG, BID
     Route: 065
  2. HYDROMORPHONE [Suspect]
     Active Substance: HYDROMORPHONE
     Dosage: 4.5 MG, BID
     Route: 065
  3. HYDROMORPHONE [Suspect]
     Active Substance: HYDROMORPHONE
     Dosage: 4.5 MG, UNK
     Route: 065
  4. HYDROMORPHONE [Suspect]
     Active Substance: HYDROMORPHONE
     Dosage: 4.5 MG, BID
     Route: 065
  5. HYDROMORPHONE [Suspect]
     Active Substance: HYDROMORPHONE
     Dosage: 4.5 MG, UNK
     Route: 065
  6. TRAMADOL HYDROCHLORIDE [Suspect]
     Active Substance: TRAMADOL HYDROCHLORIDE
     Indication: Product used for unknown indication
     Dosage: UNK, BID
     Route: 065
  7. TRAMADOL HYDROCHLORIDE [Suspect]
     Active Substance: TRAMADOL HYDROCHLORIDE
     Dosage: UNK
     Route: 065
  8. XYREM [Suspect]
     Active Substance: SODIUM OXYBATE
     Indication: Fibromyalgia
     Dosage: 2.25 G, BID
     Route: 048
  9. XYREM [Suspect]
     Active Substance: SODIUM OXYBATE
     Dosage: 5 G, BID
     Route: 048
  10. XYREM [Suspect]
     Active Substance: SODIUM OXYBATE
     Dosage: 11.7 G, DAILY
     Route: 048
  11. XYREM [Suspect]
     Active Substance: SODIUM OXYBATE
     Dosage: 12 G, DAILY
     Route: 048
  12. XYREM [Suspect]
     Active Substance: SODIUM OXYBATE
     Dosage: 12.5 G, DAILY
     Route: 048
  13. XYREM [Suspect]
     Active Substance: SODIUM OXYBATE
     Dosage: 8 G, DAILY
     Route: 048
  14. XYREM [Suspect]
     Active Substance: SODIUM OXYBATE
     Dosage: 4.5 G, BID
     Route: 048
  15. XYREM [Suspect]
     Active Substance: SODIUM OXYBATE
     Dosage: 3.75 G, BID
     Route: 048
  16. XYREM [Suspect]
     Active Substance: SODIUM OXYBATE
     Dosage: 3.5 G, BID
     Route: 048
  17. XYREM [Suspect]
     Active Substance: SODIUM OXYBATE
     Dosage: 10 G, DAILY
     Route: 048
  18. XYREM [Suspect]
     Active Substance: SODIUM OXYBATE
     Dosage: 12.75 G, DAILY
     Route: 048
  19. XYREM [Suspect]
     Active Substance: SODIUM OXYBATE
     Dosage: 11 G, DAILY
     Route: 048
  20. XYREM [Suspect]
     Active Substance: SODIUM OXYBATE
     Dosage: 3 G, BID
     Route: 048
  21. XYREM [Suspect]
     Active Substance: SODIUM OXYBATE
     Dosage: 11.25 G, DAILY
     Route: 048
  22. XYREM [Suspect]
     Active Substance: SODIUM OXYBATE
     Dosage: 5 G, BID
     Route: 048
  23. XYREM [Suspect]
     Active Substance: SODIUM OXYBATE
     Dosage: 11.7 G, DAILY
     Route: 048
  24. XYREM [Suspect]
     Active Substance: SODIUM OXYBATE
     Dosage: 12 G, DAILY
     Route: 048
  25. XYREM [Suspect]
     Active Substance: SODIUM OXYBATE
     Dosage: 12.5 G, DAILY
     Route: 048
  26. XYREM [Suspect]
     Active Substance: SODIUM OXYBATE
     Dosage: 8 MG, DAILY
     Route: 048
  27. XYREM [Suspect]
     Active Substance: SODIUM OXYBATE
     Dosage: 4.5 G, BID
     Route: 048
  28. XYREM [Suspect]
     Active Substance: SODIUM OXYBATE
     Dosage: 3.75 G, BID
     Route: 048
  29. XYREM [Suspect]
     Active Substance: SODIUM OXYBATE
     Dosage: 3.5 G, BID
     Route: 048
  30. XYREM [Suspect]
     Active Substance: SODIUM OXYBATE
     Dosage: 10 G, DAILY
     Route: 048
  31. XYREM [Suspect]
     Active Substance: SODIUM OXYBATE
     Dosage: 12.75 G, DAILY
     Route: 048
  32. XYREM [Suspect]
     Active Substance: SODIUM OXYBATE
     Dosage: 11 G, DAILY
     Route: 048
  33. XYREM [Suspect]
     Active Substance: SODIUM OXYBATE
     Dosage: 3 G, BID
     Route: 048
  34. XYREM [Suspect]
     Active Substance: SODIUM OXYBATE
     Dosage: 11.25 G, DAILY
     Route: 048
  35. XYREM [Suspect]
     Active Substance: SODIUM OXYBATE
     Dosage: 12.75 G, UNK
     Route: 048
  36. XYREM [Suspect]
     Active Substance: SODIUM OXYBATE
     Dosage: 11.7 G, UNK
     Route: 048
  37. XYREM [Suspect]
     Active Substance: SODIUM OXYBATE
     Dosage: 11.25 G, UNK
     Route: 048
  38. XYREM [Suspect]
     Active Substance: SODIUM OXYBATE
     Dosage: 3.75 G, UNK
     Route: 048
  39. XYREM [Suspect]
     Active Substance: SODIUM OXYBATE
     Dosage: 12 G, UNK
     Route: 048
  40. XYREM [Suspect]
     Active Substance: SODIUM OXYBATE
     Dosage: 4.5 G, UNK
     Route: 048
  41. XYREM [Suspect]
     Active Substance: SODIUM OXYBATE
     Dosage: 11 G, UNK
     Route: 048
  42. XYREM [Suspect]
     Active Substance: SODIUM OXYBATE
     Dosage: 3 G, UNK
     Route: 048
  43. XYREM [Suspect]
     Active Substance: SODIUM OXYBATE
     Dosage: 10 G, UNK
     Route: 048
  44. XYREM [Suspect]
     Active Substance: SODIUM OXYBATE
     Dosage: 3.5 G, UNK
     Route: 048
  45. XYREM [Suspect]
     Active Substance: SODIUM OXYBATE
     Dosage: 8 G, UNK
     Route: 048
  46. XYREM [Suspect]
     Active Substance: SODIUM OXYBATE
     Dosage: 12.5 G, UNK
     Route: 048
  47. XYREM [Suspect]
     Active Substance: SODIUM OXYBATE
     Dosage: 5 G, UNK
     Route: 048
  48. XYREM [Suspect]
     Active Substance: SODIUM OXYBATE
     Dosage: 5 G, BID
     Route: 048
  49. XYREM [Suspect]
     Active Substance: SODIUM OXYBATE
     Dosage: 11.7 G, DAILY
     Route: 048
  50. XYREM [Suspect]
     Active Substance: SODIUM OXYBATE
     Dosage: 12 G, DAILY
     Route: 048
  51. XYREM [Suspect]
     Active Substance: SODIUM OXYBATE
     Dosage: 12.5 G, DAILY
     Route: 048
  52. XYREM [Suspect]
     Active Substance: SODIUM OXYBATE
     Dosage: 8 G, DAILY
     Route: 048
  53. XYREM [Suspect]
     Active Substance: SODIUM OXYBATE
     Dosage: 4.5 G, BID
     Route: 048
  54. XYREM [Suspect]
     Active Substance: SODIUM OXYBATE
     Dosage: 3.75 G, BID
     Route: 048
  55. XYREM [Suspect]
     Active Substance: SODIUM OXYBATE
     Dosage: 3.5 G, BID
     Route: 048
  56. XYREM [Suspect]
     Active Substance: SODIUM OXYBATE
     Dosage: 10 G, DAILY
     Route: 048
  57. XYREM [Suspect]
     Active Substance: SODIUM OXYBATE
     Dosage: 12.75 G, DAILY
     Route: 048
  58. XYREM [Suspect]
     Active Substance: SODIUM OXYBATE
     Dosage: 11 G, DAILY
     Route: 048
  59. XYREM [Suspect]
     Active Substance: SODIUM OXYBATE
     Dosage: 3 G, BID
     Route: 048
  60. XYREM [Suspect]
     Active Substance: SODIUM OXYBATE
     Dosage: 11.25 G, DAILY
     Route: 048
  61. XYREM [Suspect]
     Active Substance: SODIUM OXYBATE
     Dosage: 12.75 G, UNK
     Route: 048
  62. XYREM [Suspect]
     Active Substance: SODIUM OXYBATE
     Dosage: 11.7 G, UNK
     Route: 048
  63. XYREM [Suspect]
     Active Substance: SODIUM OXYBATE
     Dosage: 11.25 G, UNK
     Route: 048
  64. XYREM [Suspect]
     Active Substance: SODIUM OXYBATE
     Dosage: 3.75 G, UNK
     Route: 048
  65. XYREM [Suspect]
     Active Substance: SODIUM OXYBATE
     Dosage: 12 G, UNK
     Route: 048
  66. XYREM [Suspect]
     Active Substance: SODIUM OXYBATE
     Dosage: 4.5 G, UNK
     Route: 048
  67. XYREM [Suspect]
     Active Substance: SODIUM OXYBATE
     Dosage: 11 G, UNK
     Route: 048
  68. XYREM [Suspect]
     Active Substance: SODIUM OXYBATE
     Dosage: 3 G, UNK
     Route: 048
  69. XYREM [Suspect]
     Active Substance: SODIUM OXYBATE
     Dosage: 10 G, UNK
     Route: 048
  70. XYREM [Suspect]
     Active Substance: SODIUM OXYBATE
     Dosage: 3.5 G, UNK
     Route: 048
  71. XYREM [Suspect]
     Active Substance: SODIUM OXYBATE
     Dosage: 8 G, UNK
     Route: 048
  72. XYREM [Suspect]
     Active Substance: SODIUM OXYBATE
     Dosage: 12.5 G, UNK
     Route: 048
  73. XYREM [Suspect]
     Active Substance: SODIUM OXYBATE
     Dosage: 5 G, UNK
     Route: 048
  74. XYREM [Suspect]
     Active Substance: SODIUM OXYBATE
     Dosage: 8 G, DAILY
     Route: 048
  75. XYREM [Suspect]
     Active Substance: SODIUM OXYBATE
     Dosage: 12 G, DAILY
     Route: 048
  76. XYREM [Suspect]
     Active Substance: SODIUM OXYBATE
     Dosage: 2.25 G, BID
     Route: 048
  77. XYREM [Suspect]
     Active Substance: SODIUM OXYBATE
     Dosage: 4.5 G, BID
     Route: 048
  78. XYREM [Suspect]
     Active Substance: SODIUM OXYBATE
     Dosage: 4.5 G, BID
     Route: 048
  79. XYREM [Suspect]
     Active Substance: SODIUM OXYBATE
     Dosage: 3 G, BID
     Route: 048
  80. XYREM [Suspect]
     Active Substance: SODIUM OXYBATE
     Dosage: 3.75 G, BID
     Route: 048
  81. XYREM [Suspect]
     Active Substance: SODIUM OXYBATE
     Dosage: 4 MG, TID
     Route: 048
  82. XYREM [Suspect]
     Active Substance: SODIUM OXYBATE
     Dosage: UNK UNK, TID
     Route: 048
  83. TRAMADOL HYDROCHLORIDE [Suspect]
     Active Substance: TRAMADOL HYDROCHLORIDE
     Indication: Product used for unknown indication
     Dosage: UNK, BID , 2 EVERY 1 DAYS
     Route: 065
  84. OXYCODONE AND ACETAMINOPHEN [Concomitant]
     Active Substance: ACETAMINOPHEN\OXYCODONE HYDROCHLORIDE
     Indication: Product used for unknown indication
     Dosage: 1 DF, UNK
     Route: 065
  85. OXYCODONE AND ACETAMINOPHEN [Concomitant]
     Active Substance: ACETAMINOPHEN\OXYCODONE HYDROCHLORIDE
     Indication: Product used for unknown indication
     Dosage: 1 DF, UNK
     Route: 065
  86. OXYCODONE AND ACETAMINOPHEN [Concomitant]
     Active Substance: ACETAMINOPHEN\OXYCODONE HYDROCHLORIDE
     Dosage: 1 DF, UNK
     Route: 065
  87. OXYCODONE AND ACETAMINOPHEN [Concomitant]
     Active Substance: ACETAMINOPHEN\OXYCODONE HYDROCHLORIDE
     Dosage: 1 DF, PRN
     Route: 065
  88. OXYCODONE AND ACETAMINOPHEN [Concomitant]
     Active Substance: ACETAMINOPHEN\OXYCODONE HYDROCHLORIDE
     Dosage: UNK
     Route: 065
  89. CIPRALEX [Concomitant]
     Active Substance: ESCITALOPRAM OXALATE
     Indication: Product used for unknown indication
     Dosage: 20 MG, DAILY
     Route: 065
  90. CIPRALEX [Concomitant]
     Active Substance: ESCITALOPRAM OXALATE
     Dosage: UNKNOWN
     Route: 065
  91. ERGOCALCIFEROL [Concomitant]
     Active Substance: ERGOCALCIFEROL
     Indication: Product used for unknown indication
     Dosage: 1 DF, DAILY
     Route: 065
  92. ERGOCALCIFEROL [Concomitant]
     Active Substance: ERGOCALCIFEROL
     Dosage: 1 DF, UNK
     Route: 065
  93. ERGOCALCIFEROL [Concomitant]
     Active Substance: ERGOCALCIFEROL
     Dosage: UNK
     Route: 065
  94. MODAFINIL [Concomitant]
     Active Substance: MODAFINIL
     Indication: Product used for unknown indication
     Dosage: 100 MG, BID
     Route: 065
  95. MODAFINIL [Concomitant]
     Active Substance: MODAFINIL
     Dosage: 100 MG, UNK
     Route: 065
  96. MODAFINIL [Concomitant]
     Active Substance: MODAFINIL
     Dosage: UNK
     Route: 065
  97. ROSUVASTATIN [Concomitant]
     Active Substance: ROSUVASTATIN
     Indication: Product used for unknown indication
     Dosage: 10 MG, DAILY
     Route: 065
  98. ROSUVASTATIN [Concomitant]
     Active Substance: ROSUVASTATIN
     Dosage: 10 MG, UNK
     Route: 065
  99. ROSUVASTATIN [Concomitant]
     Active Substance: ROSUVASTATIN
     Dosage: UNK
     Route: 065
  100. SYNTHROID [Concomitant]
     Active Substance: LEVOTHYROXINE SODIUM
     Indication: Product used for unknown indication
     Dosage: 0.137 MG, DAILY
     Route: 048
  101. SYNTHROID [Concomitant]
     Active Substance: LEVOTHYROXINE SODIUM
     Dosage: 0.137 MG, UNK
     Route: 048
  102. SYNTHROID [Concomitant]
     Active Substance: LEVOTHYROXINE SODIUM
     Dosage: UNK
     Route: 065
  103. TOPIRAMATE [Concomitant]
     Active Substance: TOPIRAMATE
     Indication: Product used for unknown indication
     Dosage: 200 MG, BID
     Route: 065
  104. TOPIRAMATE [Concomitant]
     Active Substance: TOPIRAMATE
     Dosage: 200 MG, UNK
     Route: 065
  105. TOPIRAMATE [Concomitant]
     Active Substance: TOPIRAMATE
     Dosage: UNK
     Route: 065
  106. VENTOLIN [Concomitant]
     Active Substance: ALBUTEROL SULFATE
     Indication: Product used for unknown indication
     Dosage: UNK
     Route: 065
  107. VENTOLIN [Concomitant]
     Active Substance: ALBUTEROL SULFATE
     Dosage: 0.137 MG, UNK
     Route: 048
  108. VENTOLIN [Concomitant]
     Active Substance: ALBUTEROL SULFATE
     Dosage: UNK, PRN
     Route: 065
  109. VITAMIN B COMPLEX [Concomitant]
     Active Substance: CYANOCOBALAMIN\DEXPANTHENOL\NIACINAMIDE\PYRIDOXINE HYDROCHLORIDE\RIBOFLAVIN 5^-PHOSPHATE SODIUM\THIA
     Indication: Product used for unknown indication
     Dosage: 1 DF, DAILY
     Route: 065
  110. VITAMIN B COMPLEX [Concomitant]
     Active Substance: CYANOCOBALAMIN\DEXPANTHENOL\NIACINAMIDE\PYRIDOXINE HYDROCHLORIDE\RIBOFLAVIN 5^-PHOSPHATE SODIUM\THIA
     Dosage: 1 DF, UNK
     Route: 065
  111. VITAMIN B COMPLEX [Concomitant]
     Active Substance: CYANOCOBALAMIN\DEXPANTHENOL\NIACINAMIDE\PYRIDOXINE HYDROCHLORIDE\RIBOFLAVIN 5^-PHOSPHATE SODIUM\THIA
     Dosage: UNK
     Route: 065
  112. CIPRALEX                           /01588501/ [Concomitant]
     Indication: Product used for unknown indication
     Dosage: 20 MG, DAILY
     Route: 065
  113. CIPRALEX                           /01588501/ [Concomitant]
     Dosage: 20 MG, UNK
     Route: 065
  114. CIPRALEX                           /01588501/ [Concomitant]
     Dosage: UNK
     Route: 065

REACTIONS (17)
  - Aphonia [Not Recovered/Not Resolved]
  - Ear infection [Not Recovered/Not Resolved]
  - Loss of personal independence in daily activities [Not Recovered/Not Resolved]
  - Drug interaction [Not Recovered/Not Resolved]
  - Ear discomfort [Not Recovered/Not Resolved]
  - General physical health deterioration [Not Recovered/Not Resolved]
  - Middle ear effusion [Not Recovered/Not Resolved]
  - Movement disorder [Not Recovered/Not Resolved]
  - Nasopharyngitis [Not Recovered/Not Resolved]
  - Swelling [Not Recovered/Not Resolved]
  - Pain [Not Recovered/Not Resolved]
  - Insomnia [Not Recovered/Not Resolved]
  - Screaming [Not Recovered/Not Resolved]
  - Peripheral swelling [Not Recovered/Not Resolved]
  - Drug hypersensitivity [Not Recovered/Not Resolved]
  - Asthenia [Not Recovered/Not Resolved]
  - Product dose omission issue [Not Recovered/Not Resolved]
